FAERS Safety Report 8027949 (Version 2)
Quarter: 2012Q4

REPORT INFORMATION
  Report Type: Spontaneous
  Country: US (occurrence: None)
  Receive Date: 20110620
  Receipt Date: 20120426
  Transmission Date: 20130627
  Serious: Yes (Other)
  Sender: FDA-Public Use
  Company Number: 2011GW000344

PATIENT
  Age: 76 Year
  Sex: Male
  Weight: 86.18 kg

DRUGS (5)
  1. ZYCLARA [Suspect]
     Indication: ACTINIC KERATOSIS
     Dosage: 3.75 PCT, TOP
     Route: 061
  2. PLAVIX [Concomitant]
  3. POTASSIUM [Concomitant]
  4. ASPIRIN [Concomitant]
  5. PRAVASTATIN [Concomitant]

REACTIONS (4)
  - COGNITIVE DISORDER [None]
  - CEREBRAL DISORDER [None]
  - APPLICATION SITE DISCHARGE [None]
  - APPLICATION SITE SCAB [None]
